FAERS Safety Report 11679340 (Version 2)
Quarter: 2015Q4

REPORT INFORMATION
  Report Type: Spontaneous
  Country: US (occurrence: US)
  Receive Date: 20151027
  Receipt Date: 20151104
  Transmission Date: 20160304
  Serious: No
  Sender: FDA-Public Use
  Company Number: US-ELI_LILLY_AND_COMPANY-US201003000538

PATIENT
  Age: 67 Year
  Sex: Female

DRUGS (5)
  1. FORTEO [Suspect]
     Active Substance: TERIPARATIDE
     Dosage: 20 UG, DAILY (1/D)
  2. FORTEO [Suspect]
     Active Substance: TERIPARATIDE
     Indication: OSTEOPOROSIS
     Dosage: 20 UG, DAILY (1/D)
     Dates: start: 20100217
  3. FORTEO [Suspect]
     Active Substance: TERIPARATIDE
     Dosage: 20 UG, DAILY (1/D)
  4. FORTEO [Suspect]
     Active Substance: TERIPARATIDE
     Dosage: 20 UG, DAILY (1/D)
  5. FORTEO [Suspect]
     Active Substance: TERIPARATIDE
     Dosage: 20 UG, 2/W
     Route: 065
     Dates: start: 20100301

REACTIONS (12)
  - Drug prescribing error [Not Recovered/Not Resolved]
  - Lethargy [Not Recovered/Not Resolved]
  - Nervousness [Unknown]
  - Headache [Recovered/Resolved]
  - Constipation [Recovering/Resolving]
  - Hypotension [Unknown]
  - Dizziness [Unknown]
  - Feeling jittery [Unknown]
  - Alopecia [Recovering/Resolving]
  - Hair texture abnormal [Unknown]
  - Listless [Recovered/Resolved]
  - Nausea [Not Recovered/Not Resolved]

NARRATIVE: CASE EVENT DATE: 201002
